FAERS Safety Report 8564048-8 (Version None)
Quarter: 2012Q3

REPORT INFORMATION
  Report Type: 
  Country: None (occurrence: None)
  Receive Date: 20120803
  Receipt Date: 20120720
  Transmission Date: 20120928
  Serious: Yes (Other)
  Sender: FDA-Public Use
  Company Number: DE-RANBAXY-2012R1-58561

PATIENT
  Age: 82 Year
  Sex: Female

DRUGS (1)
  1. AMOXICILLIN [Suspect]
     Indication: SINUSITIS
     Dosage: UNK
     Route: 065
     Dates: start: 20100813, end: 20100820

REACTIONS (1)
  - HEPATOTOXICITY [None]
